FAERS Safety Report 25804780 (Version 2)
Quarter: 2025Q4

REPORT INFORMATION
  Report Type: Spontaneous
  Country: US (occurrence: US)
  Receive Date: 20250915
  Receipt Date: 20251124
  Transmission Date: 20260117
  Serious: Yes (Other)
  Sender: ABBVIE
  Company Number: US-ABBVIE-6454829

PATIENT
  Sex: Male

DRUGS (1)
  1. RINVOQ [Suspect]
     Active Substance: UPADACITINIB
     Indication: Maternal exposure timing unspecified
     Route: 064

REACTIONS (6)
  - Dacryostenosis acquired [Recovered/Resolved]
  - Foetal exposure during pregnancy [Unknown]
  - Lactose intolerance [Not Recovered/Not Resolved]
  - Nasal congestion [Not Recovered/Not Resolved]
  - Infection [Not Recovered/Not Resolved]
  - Hypersensitivity [Not Recovered/Not Resolved]

NARRATIVE: CASE EVENT DATE: 20241113
